FAERS Safety Report 9990555 (Version 1)
Quarter: 2014Q1

REPORT INFORMATION
  Report Type: Spontaneous
  Country: US (occurrence: US)
  Receive Date: 20140310
  Receipt Date: 20140310
  Transmission Date: 20141002
  Serious: No
  Sender: FDA-Public Use
  Company Number: US-TEVA-467624USA

PATIENT
  Sex: Male

DRUGS (1)
  1. QVAR [Suspect]

REACTIONS (3)
  - Laryngitis [Unknown]
  - General physical health deterioration [Unknown]
  - Dysphonia [Unknown]
